FAERS Safety Report 9199426 (Version 1)
Quarter: 2013Q1

REPORT INFORMATION
  Report Type: Spontaneous
  Country: US (occurrence: US)
  Receive Date: 20130329
  Receipt Date: 20130329
  Transmission Date: 20140127
  Serious: No
  Sender: FDA-Public Use
  Company Number: US-PFIZER INC-2013098204

PATIENT
  Age: 65 Year
  Sex: Female

DRUGS (2)
  1. LEVOXYL [Suspect]
     Indication: THYROID HORMONE REPLACEMENT THERAPY
     Dosage: 37.5 UG, 1X/DAY, HALF OF 75 MCG
     Route: 048
     Dates: start: 2007
  2. MIRTAZAPINE [Concomitant]
     Indication: SLEEP DISORDER
     Dosage: 22.5 MG, 1X/DAY

REACTIONS (2)
  - Product taste abnormal [Unknown]
  - Abdominal discomfort [Unknown]
